FAERS Safety Report 14833481 (Version 2)
Quarter: 2018Q2

REPORT INFORMATION
  Report Type: Spontaneous
  Country: US (occurrence: US)
  Receive Date: 20180501
  Receipt Date: 20180529
  Transmission Date: 20180711
  Serious: Yes (Other)
  Sender: FDA-Public Use
  Company Number: US-PFIZER INC-2017533779

PATIENT
  Age: 74 Year
  Sex: Female
  Weight: 81.63 kg

DRUGS (3)
  1. FASLODEX [Suspect]
     Active Substance: FULVESTRANT
     Dosage: 500 MG, MONTHLY [500MG SHOT EVERY MONTH IN THE BUTTOCK]
  2. FASLODEX [Suspect]
     Active Substance: FULVESTRANT
     Indication: BREAST CANCER METASTATIC
     Dosage: 500MG INJECTION EVERY TWO WEEKS)
     Dates: start: 201711
  3. IBRANCE [Suspect]
     Active Substance: PALBOCICLIB
     Indication: METASTATIC GASTRIC CANCER
     Dosage: 125 MG, CYCLIC [125 MG CAPSULE ONCE A DAY BY MOUTH FOR 21 DAYS AND THEN NONE FOR 7 DAYS]
     Route: 048
     Dates: start: 201711

REACTIONS (5)
  - Product use in unapproved indication [Unknown]
  - Epistaxis [Recovered/Resolved]
  - Ascites [Unknown]
  - Constipation [Recovering/Resolving]
  - Weight decreased [Unknown]

NARRATIVE: CASE EVENT DATE: 201711
